FAERS Safety Report 24250921 (Version 1)
Quarter: 2024Q3

REPORT INFORMATION
  Report Type: Spontaneous
  Country: FR (occurrence: FR)
  Receive Date: 20240826
  Receipt Date: 20240826
  Transmission Date: 20241017
  Serious: Yes (Hospitalization)
  Sender: MYLAN
  Company Number: None

PATIENT
  Age: 81 Year
  Sex: Female

DRUGS (4)
  1. LANSOPRAZOLE [Suspect]
     Active Substance: LANSOPRAZOLE
     Indication: Psychotic disorder
     Dosage: 75 MILLIGRAM, QD (25 MG/3 TIMES PER DAY, 1 DF, ORAL)
     Route: 048
     Dates: start: 20240425, end: 20240612
  2. OLANZAPINE [Suspect]
     Active Substance: OLANZAPINE
     Indication: Psychotic disorder
     Dosage: 15 MILLIGRAM, QD (15 MG/DAY)
     Route: 048
     Dates: start: 20240320, end: 20240612
  3. VALPROATE SODIUM [Suspect]
     Active Substance: VALPROATE SODIUM
     Indication: Epilepsy
     Dosage: 500 MILLIGRAM, BID (500 MG/2 TIMES PER DAY)
     Route: 048
     Dates: start: 20240502, end: 20240610
  4. CHLORPROMAZINE [Suspect]
     Active Substance: CHLORPROMAZINE
     Indication: Psychotic disorder
     Dosage: 75 MILLIGRAM, QD (25 MG/3 FOIS PAR J)
     Route: 048
     Dates: start: 20240425, end: 20240601

REACTIONS (1)
  - Hepatitis [Recovering/Resolving]

NARRATIVE: CASE EVENT DATE: 20240531
